FAERS Safety Report 5701746-5 (Version None)
Quarter: 2008Q2

REPORT INFORMATION
  Report Type: 
  Country: None (occurrence: None)
  Receive Date: 20080408
  Receipt Date: 20080325
  Transmission Date: 20081010
  Serious: Yes (Hospitalization)
  Sender: FDA-Public Use
  Company Number: 2007BI026363

PATIENT
  Age: 48 Year
  Sex: Female

DRUGS (1)
  1. TYSABRI [Suspect]
     Indication: MULTIPLE SCLEROSIS
     Dosage: 300 MG; QM; IV
     Route: 042
     Dates: start: 20070821, end: 20080107

REACTIONS (8)
  - ASTHENIA [None]
  - CERVICAL MYELOPATHY [None]
  - DECUBITUS ULCER [None]
  - DEMYELINATION [None]
  - DISEASE PROGRESSION [None]
  - MULTIPLE SCLEROSIS [None]
  - NECK PAIN [None]
  - URINARY TRACT INFECTION [None]
